FAERS Safety Report 10566155 (Version 1)
Quarter: 2014Q4

REPORT INFORMATION
  Report Type: Spontaneous
  Country: US (occurrence: None)
  Receive Date: 20141104
  Receipt Date: 20141104
  Transmission Date: 20150529
  Serious: No
  Sender: FDA-Public Use
  Company Number: None

PATIENT
  Age: 48 Year
  Sex: Female
  Weight: 97.98 kg

DRUGS (1)
  1. ICY HOT MEDICATED NO MESS APPLICATOR [Suspect]
     Active Substance: MENTHOL
     Indication: ARTHRALGIA
     Dates: start: 20140927

REACTIONS (3)
  - Skin burning sensation [None]
  - Hyperaesthesia [None]
  - Application site pain [None]

NARRATIVE: CASE EVENT DATE: 20140927
